FAERS Safety Report 8993007 (Version 1)
Quarter: 2013Q1

REPORT INFORMATION
  Report Type: Spontaneous
  Country: BR (occurrence: BR)
  Receive Date: 20130102
  Receipt Date: 20130102
  Transmission Date: 20140127
  Serious: Yes (Hospitalization, Disabling, Other)
  Sender: FDA-Public Use
  Company Number: BR-SANOFI-AVENTIS-2012SA093258

PATIENT
  Sex: Female
  Weight: 69 kg

DRUGS (10)
  1. LANTUS [Suspect]
     Indication: TYPE 1 DIABETES MELLITUS
     Route: 058
     Dates: start: 2004, end: 201204
  2. LANTUS [Suspect]
     Indication: TYPE 1 DIABETES MELLITUS
     Dosage: DOSE: 24 OR 26 IU
     Route: 058
     Dates: start: 201204
  3. AUTOPEN 24 [Suspect]
     Indication: DEVICE THERAPY
     Dates: start: 2004
  4. INSULIN, REGULAR [Concomitant]
     Indication: TYPE 1 DIABETES MELLITUS
     Dates: start: 2004
  5. CYMBALTA [Concomitant]
     Indication: NEUROPATHY PERIPHERAL
     Dosage: STRENGTH:40 MG
     Dates: start: 2010
  6. ANTIHYPERTENSIVES [Concomitant]
     Indication: BLOOD PRESSURE
     Dates: start: 2007
  7. RAMIPRIL [Concomitant]
     Indication: BLOOD PRESSURE
  8. LOSARTAN [Concomitant]
     Indication: BLOOD PRESSURE
     Dosage: 50 MG
  9. PODOPHYLLIN [Concomitant]
     Indication: BLOOD PRESSURE
  10. ROSUVASTATIN CALCIUM [Concomitant]
     Indication: BLOOD CHOLESTEROL

REACTIONS (17)
  - Ocular vascular disorder [Unknown]
  - Retinal detachment [Unknown]
  - Blindness [Unknown]
  - Ocular vascular disorder [Unknown]
  - Nephrogenic anaemia [Not Recovered/Not Resolved]
  - Renal failure [Recovering/Resolving]
  - Dysuria [Recovering/Resolving]
  - Swelling [Recovering/Resolving]
  - Weight increased [Recovering/Resolving]
  - Asthenia [Unknown]
  - Gait disturbance [Unknown]
  - Hypoglycaemic coma [Recovering/Resolving]
  - Asthenia [Recovering/Resolving]
  - Hyperhidrosis [Recovering/Resolving]
  - Visual acuity reduced [Unknown]
  - Hypotension [Unknown]
  - Feeling abnormal [Unknown]
